FAERS Safety Report 7438515-4 (Version None)
Quarter: 2011Q2

REPORT INFORMATION
  Report Type: 
  Country: None (occurrence: None)
  Receive Date: 20110418
  Receipt Date: 20110413
  Transmission Date: 20111010
  Serious: Yes (Death)
  Sender: FDA-Public Use
  Company Number: 2011SP016747

PATIENT
  Age: 56 Year
  Sex: Male

DRUGS (1)
  1. PROVENTIL [Suspect]
     Indication: PRODUCT USED FOR UNKNOWN INDICATION
     Dosage: 180 MCG;Q6H;INH
     Route: 055
     Dates: start: 20110301

REACTIONS (1)
  - DEATH [None]
